FAERS Safety Report 24848203 (Version 1)
Quarter: 2025Q1

REPORT INFORMATION
  Report Type: Spontaneous
  Country: US (occurrence: US)
  Receive Date: 20250116
  Receipt Date: 20250116
  Transmission Date: 20250409
  Serious: Yes (Hospitalization, Disabling, Other)
  Sender: CHATTEM
  Company Number: US-OPELLA-2025OHG000949

PATIENT
  Age: 76 Year
  Sex: Female

DRUGS (1)
  1. GOLD BOND ORIGINAL STRENGTH [Suspect]
     Active Substance: MENTHOL
     Indication: Product used for unknown indication
     Route: 065

REACTIONS (10)
  - Pleural mesothelioma malignant [Unknown]
  - Physical disability [Unknown]
  - Exposure to chemical pollution [Unknown]
  - Pain [Unknown]
  - Emotional distress [Unknown]
  - Deformity [Unknown]
  - Anxiety [Unknown]
  - Discomfort [Unknown]
  - Quality of life decreased [Unknown]
  - Injury [Unknown]
